FAERS Safety Report 7412873-9 (Version None)
Quarter: 2011Q2

REPORT INFORMATION
  Report Type: 
  Country: None (occurrence: None)
  Receive Date: 20110413
  Receipt Date: 20110224
  Transmission Date: 20111010
  Serious: Yes (Other)
  Sender: FDA-Public Use
  Company Number: D0070425B

PATIENT
  Sex: Female
  Weight: 50.7 kg

DRUGS (8)
  1. TOPAMAX [Concomitant]
     Dosage: 50MG TWICE PER DAY
     Route: 065
     Dates: start: 20040101
  2. DECORTIN [Concomitant]
     Dosage: 7.5MG PER DAY
     Route: 065
     Dates: start: 20040101
  3. ISENTRESS [Suspect]
     Indication: HIV INFECTION
     Dosage: 400MG TWICE PER DAY
     Route: 048
     Dates: start: 20101020, end: 20110221
  4. EPIVIR [Suspect]
     Indication: HIV INFECTION
     Dosage: 150MG TWICE PER DAY
     Dates: start: 20060601
  5. LAMOTRIGINE [Concomitant]
     Dosage: 250MG PER DAY
     Route: 065
     Dates: start: 20040101
  6. ZIAGEN [Suspect]
     Indication: HIV INFECTION
     Dosage: 300MG TWICE PER DAY
     Route: 048
     Dates: start: 20060601
  7. KEPPRA [Concomitant]
     Dosage: 1000MG THREE TIMES PER DAY
     Route: 065
     Dates: start: 20040101
  8. CELSENTRI [Suspect]
     Indication: HIV INFECTION
     Dosage: 300MG TWICE PER DAY
     Route: 048
     Dates: start: 20101020, end: 20110221

REACTIONS (5)
  - AGGRESSION [None]
  - NERVOUS SYSTEM DISORDER [None]
  - ABDOMINAL DISTENSION [None]
  - DEPRESSION [None]
  - DIZZINESS [None]
